APPROVED DRUG PRODUCT: VARENICLINE TARTRATE
Active Ingredient: VARENICLINE TARTRATE
Strength: EQ 0.5MG BASE
Dosage Form/Route: TABLET;ORAL
Application: A211862 | Product #001 | TE Code: AB
Applicant: LUPIN LTD
Approved: Dec 4, 2023 | RLD: No | RS: No | Type: RX